FAERS Safety Report 25010809 (Version 1)
Quarter: 2025Q1

REPORT INFORMATION
  Report Type: Spontaneous
  Country: US (occurrence: US)
  Receive Date: 20250225
  Receipt Date: 20250225
  Transmission Date: 20250409
  Serious: No
  Sender: AMGEN
  Company Number: US-AMGEN-USASP2025034569

PATIENT
  Sex: Male

DRUGS (1)
  1. PROLIA [Suspect]
     Active Substance: DENOSUMAB
     Indication: Product used for unknown indication
     Route: 065

REACTIONS (7)
  - Shoulder fracture [Unknown]
  - Osteoporosis [Unknown]
  - Ill-defined disorder [Unknown]
  - Cough [Unknown]
  - Fall [Unknown]
  - Rhinorrhoea [Unknown]
  - Back pain [Unknown]
